FAERS Safety Report 14878857 (Version 1)
Quarter: 2018Q2

REPORT INFORMATION
  Report Type: Spontaneous
  Country: FR (occurrence: FR)
  Receive Date: 20180511
  Receipt Date: 20180511
  Transmission Date: 20180711
  Serious: Yes (Other)
  Sender: FDA-Public Use
  Company Number: FR-MERCK KGAA-2047600

PATIENT
  Age: 60 Year
  Sex: Female
  Weight: 63 kg

DRUGS (1)
  1. NOVOTHYROX [Suspect]
     Active Substance: LEVOTHYROXINE SODIUM
     Indication: HYPOTHYROIDISM
     Dates: start: 2017

REACTIONS (13)
  - Abdominal pain upper [None]
  - Major depression [None]
  - Arthralgia [None]
  - Gastrointestinal motility disorder [None]
  - Myalgia [None]
  - Muscle spasms [None]
  - Asthenia [None]
  - Mental impairment [None]
  - Disturbance in attention [None]
  - Anxiety [None]
  - Irritability [None]
  - Headache [None]
  - Mental fatigue [None]

NARRATIVE: CASE EVENT DATE: 201707
